FAERS Safety Report 24760979 (Version 1)
Quarter: 2024Q4

REPORT INFORMATION
  Report Type: Spontaneous
  Country: GR (occurrence: GR)
  Receive Date: 20241220
  Receipt Date: 20241220
  Transmission Date: 20250115
  Serious: Yes (Death, Life-Threatening, Other)
  Sender: ABBVIE
  Company Number: None

PATIENT
  Age: 25 Year
  Sex: Male

DRUGS (10)
  1. CITALOPRAM HYDROBROMIDE [Interacting]
     Active Substance: CITALOPRAM HYDROBROMIDE
     Indication: Depression
     Dosage: DOSE DESC: UNK, FORM: UNKNOWN
     Route: 065
  2. FLUOXETINE HYDROCHLORIDE [Interacting]
     Active Substance: FLUOXETINE HYDROCHLORIDE
     Indication: Depression
     Dosage: DOSE DESC: UNK, FORM: UNKNOWN
     Route: 065
  3. MOCLOBEMIDE [Interacting]
     Active Substance: MOCLOBEMIDE
     Indication: Depression
     Dosage: DOSE DESC: UNK
     Route: 065
  4. QUETIAPINE FUMARATE [Interacting]
     Active Substance: QUETIAPINE FUMARATE
     Indication: Depression
     Route: 048
  5. PROPRANOLOL HYDROCHLORIDE [Interacting]
     Active Substance: PROPRANOLOL HYDROCHLORIDE
     Indication: Product used for unknown indication
     Route: 065
  6. PERINDOPRIL [Interacting]
     Active Substance: PERINDOPRIL
     Indication: Product used for unknown indication
     Route: 065
  7. DESLORATADINE [Interacting]
     Active Substance: DESLORATADINE
     Indication: Overdose
     Route: 065
  8. ALPRAZOLAM [Interacting]
     Active Substance: ALPRAZOLAM
     Indication: Depression
     Route: 048
  9. FLURBIPROFEN [Concomitant]
     Active Substance: FLURBIPROFEN
     Indication: Overdose
     Route: 065
  10. VALPROIC ACID [Interacting]
     Active Substance: VALPROIC ACID
     Indication: Overdose
     Route: 048

REACTIONS (6)
  - Toxicity to various agents [Fatal]
  - Intentional overdose [Fatal]
  - Arrhythmia [Fatal]
  - Drug interaction [Fatal]
  - Electrocardiogram QT prolonged [Fatal]
  - Off label use [Unknown]
